FAERS Safety Report 8847840 (Version 1)
Quarter: 2012Q4

REPORT INFORMATION
  Report Type: Report from Study
  Country: US (occurrence: US)
  Receive Date: 20121018
  Receipt Date: 20121018
  Transmission Date: 20130627
  Serious: Yes (Other)
  Sender: FDA-Public Use
  Company Number: US-JNJFOC-20121008993

PATIENT
  Age: 14 Year
  Sex: Female
  Weight: 40.9 kg

DRUGS (5)
  1. INFLIXIMAB, RECOMBINANT [Suspect]
     Indication: INFLAMMATORY BOWEL DISEASE
     Route: 042
     Dates: start: 20120223
  2. PREDNISONE [Concomitant]
  3. AZATHIOPRINE [Concomitant]
  4. PREVACID [Concomitant]
  5. MULTIVITAMINS [Concomitant]

REACTIONS (1)
  - Takayasu^s arteritis [Not Recovered/Not Resolved]
